FAERS Safety Report 19246628 (Version 1)
Quarter: 2021Q2

REPORT INFORMATION
  Report Type: Spontaneous
  Country: US (occurrence: US)
  Receive Date: 20210512
  Receipt Date: 20210512
  Transmission Date: 20210717
  Serious: Yes (Other)
  Sender: FDA-Public Use
  Company Number: US-TEVA-2021-US-1909920

PATIENT
  Age: 49 Year
  Sex: Female

DRUGS (11)
  1. BENZTROPINE MESYLATE. [Concomitant]
     Active Substance: BENZTROPINE MESYLATE
     Route: 048
  2. HYDROXYZINE HCI [Concomitant]
     Route: 048
  3. LAMOTRIGINE. [Concomitant]
     Active Substance: LAMOTRIGINE
     Route: 048
  4. BUSPIRONE HCI [Concomitant]
     Route: 048
  5. TRAZODONE HCI [Concomitant]
     Route: 048
  6. ORNEPRAZOIE [Concomitant]
     Dosage: ORNEPRAZOIE ORAL CAPSULE DELAYED  RELEASE 40 MG
     Route: 048
  7. C!TALOPRARN HYDROBROTNIDE [Concomitant]
     Route: 048
  8. LITHIUM CARBONATE. [Concomitant]
     Active Substance: LITHIUM CARBONATE
     Route: 048
  9. OLANLAPINE [Concomitant]
     Route: 048
  10. CLONAZPAM [Concomitant]
     Dosage: 1
     Route: 048
  11. AUSTEDO [Suspect]
     Active Substance: DEUTETRABENAZINE
     Indication: TARDIVE DYSKINESIA
     Dosage: 24 MILLIGRAM DAILY;
     Route: 065
     Dates: start: 20210409

REACTIONS (1)
  - Suicidal ideation [Unknown]

NARRATIVE: CASE EVENT DATE: 2021
